FAERS Safety Report 5570073-1 (Version None)
Quarter: 2007Q4

REPORT INFORMATION
  Report Type: 
  Country: None (occurrence: None)
  Receive Date: 20071218
  Receipt Date: 20071205
  Transmission Date: 20080405
  Serious: Yes (Hospitalization)
  Sender: FDA-Public Use
  Company Number: E3810-01062-SPO-CA

PATIENT
  Age: 76 Year
  Sex: Female
  Weight: 54 kg

DRUGS (6)
  1. RABEPRAZOLE SODIUM [Suspect]
     Dosage: 20 MG, 1 IN 1 D, ORAL
     Route: 048
     Dates: start: 20061128, end: 20061201
  2. FUROSEMIDE [Concomitant]
  3. OMEPRAZOLE [Concomitant]
  4. LORAZEPAM [Concomitant]
  5. MINOCIN [Concomitant]
  6. ZOPICONE                  (ZOPICLONE) [Concomitant]

REACTIONS (20)
  - ACNE [None]
  - ANXIETY [None]
  - BONE PAIN [None]
  - BURNING SENSATION [None]
  - BURSITIS [None]
  - CHILLS [None]
  - CONSTIPATION [None]
  - DRY MOUTH [None]
  - DYSPNOEA [None]
  - INSOMNIA [None]
  - JOINT SWELLING [None]
  - MUSCULOSKELETAL STIFFNESS [None]
  - NECK PAIN [None]
  - NIGHTMARE [None]
  - OEDEMA [None]
  - PRURITUS [None]
  - PYREXIA [None]
  - SKIN DISCOLOURATION [None]
  - VARICOSE VEIN [None]
  - VISION BLURRED [None]
